FAERS Safety Report 11190065 (Version 1)
Quarter: 2015Q2

REPORT INFORMATION
  Report Type: Spontaneous
  Country: US (occurrence: None)
  Receive Date: 20150601
  Receipt Date: 20150601
  Transmission Date: 20150821
  Serious: Yes (Hospitalization)
  Sender: FDA-Public Use
  Company Number: 2014-001897

PATIENT
  Age: 64 Year
  Sex: Female

DRUGS (2)
  1. HYDROCHLOROTHIAZIDE (HYDROCHLOROTHIAZIDE) [Concomitant]
     Active Substance: HYDROCHLOROTHIAZIDE
  2. ATELVIA [Suspect]
     Active Substance: RISEDRONATE SODIUM
     Indication: OSTEOPOROSIS
     Dosage: 35 MG ONCE ONLY, ORAL
     Route: 048
     Dates: start: 20140621, end: 20140621

REACTIONS (4)
  - Abdominal pain [None]
  - Musculoskeletal pain [None]
  - Back pain [None]
  - Chest pain [None]

NARRATIVE: CASE EVENT DATE: 20140622
